FAERS Safety Report 8602159-9 (Version None)
Quarter: 2012Q3

REPORT INFORMATION
  Report Type: 
  Country: None (occurrence: None)
  Receive Date: 20120817
  Receipt Date: 20120810
  Transmission Date: 20120928
  Serious: Yes (Other)
  Sender: FDA-Public Use
  Company Number: US-JNJFOC-20120806231

PATIENT
  Sex: Female

DRUGS (2)
  1. MINOXIDIL [Suspect]
     Route: 061
  2. MINOXIDIL [Suspect]
     Indication: HAIR GROWTH ABNORMAL
     Dosage: MORE THAN A CAP FULL
     Route: 061
     Dates: start: 20110101

REACTIONS (2)
  - INTRAOCULAR PRESSURE INCREASED [None]
  - WRONG DRUG ADMINISTERED [None]
